FAERS Safety Report 20820978 (Version 3)
Quarter: 2023Q1

REPORT INFORMATION
  Report Type: Report from Study
  Country: CO (occurrence: CO)
  Receive Date: 20220512
  Receipt Date: 20230209
  Transmission Date: 20230417
  Serious: No
  Sender: FDA-Public Use
  Company Number: CO-NOVARTISPH-NVSC2021CO252478

PATIENT
  Sex: Female

DRUGS (2)
  1. KISQALI [Suspect]
     Active Substance: RIBOCICLIB
     Indication: Breast cancer metastatic
     Dosage: 600 MG, QD
     Route: 048
  2. LETROZOLE [Suspect]
     Active Substance: LETROZOLE
     Indication: Breast cancer
     Dosage: 2.5 MG, QD
     Route: 048

REACTIONS (13)
  - Haemoglobin decreased [Unknown]
  - Decreased immune responsiveness [Unknown]
  - Anal haemorrhage [Unknown]
  - Bone pain [Recovered/Resolved]
  - Procedural complication [Unknown]
  - Malaise [Unknown]
  - Constipation [Unknown]
  - Abdominal pain upper [Unknown]
  - Decreased appetite [Unknown]
  - Vomiting [Unknown]
  - Headache [Unknown]
  - Pyrexia [Unknown]
  - Dry mouth [Unknown]
